FAERS Safety Report 6400808-7 (Version None)
Quarter: 2009Q4

REPORT INFORMATION
  Report Type: 
  Country: None (occurrence: None)
  Receive Date: 20091009
  Receipt Date: 20091004
  Transmission Date: 20100525
  Serious: Yes (Other)
  Sender: FDA-Public Use
  Company Number: 2009SP028781

PATIENT
  Age: 38 Year
  Sex: Female

DRUGS (4)
  1. INTRON A [Suspect]
     Indication: HEPATITIS C
     Dates: start: 19970801, end: 19980601
  2. INTRON A [Suspect]
     Indication: HEPATITIS C
     Dates: start: 20090927
  3. RIBAVIRIN [Suspect]
     Indication: HEPATITIS C
     Dosage: ; PO
     Route: 048
     Dates: start: 19970801, end: 19980601
  4. RIBAVIRIN [Suspect]
     Indication: HEPATITIS C
     Dosage: ; PO
     Route: 048
     Dates: start: 20090927

REACTIONS (3)
  - HYPERTHYROIDISM [None]
  - INFLUENZA LIKE ILLNESS [None]
  - VOMITING [None]
